FAERS Safety Report 20012160 (Version 1)
Quarter: 2021Q4

REPORT INFORMATION
  Report Type: Other
  Country: IT (occurrence: IT)
  Receive Date: 20211029
  Receipt Date: 20211029
  Transmission Date: 20220303
  Serious: Yes (Hospitalization)
  Sender: FDA-Public Use
  Company Number: None

PATIENT
  Age: 72 Year
  Sex: Female

DRUGS (3)
  1. CLONAZEPAM [Suspect]
     Active Substance: CLONAZEPAM
     Indication: Drug abuse
     Route: 065
     Dates: start: 20211009, end: 20211009
  2. CIPRALEX [Suspect]
     Active Substance: ESCITALOPRAM OXALATE
     Indication: Drug abuse
     Route: 065
     Dates: start: 20211009, end: 20211009
  3. OLANZAPINE [Concomitant]
     Active Substance: OLANZAPINE

REACTIONS (3)
  - Respiratory failure [Not Recovered/Not Resolved]
  - Drug abuse [Unknown]
  - Agonal respiration [Not Recovered/Not Resolved]

NARRATIVE: CASE EVENT DATE: 20211009
